FAERS Safety Report 17901769 (Version 1)
Quarter: 2020Q2

REPORT INFORMATION
  Report Type: Spontaneous
  Country: CN (occurrence: CN)
  Receive Date: 20200616
  Receipt Date: 20200616
  Transmission Date: 20200714
  Serious: Yes (Other)
  Sender: FDA-Public Use
  Company Number: CN-GLAXOSMITHKLINE-CN2020APC097602

PATIENT
  Age: 1 Month
  Sex: Male

DRUGS (1)
  1. ZINACEF [Suspect]
     Active Substance: CEFUROXIME SODIUM
     Indication: INFECTION
     Dosage: 0.45 G, QD
     Dates: start: 20200603, end: 20200605

REACTIONS (6)
  - Dyspnoea [Recovering/Resolving]
  - Airway complication of anaesthesia [Recovering/Resolving]
  - Crying [Recovering/Resolving]
  - Slow response to stimuli [Recovering/Resolving]
  - Cough [Recovering/Resolving]
  - Cyanosis [Recovering/Resolving]

NARRATIVE: CASE EVENT DATE: 20200605
